FAERS Safety Report 7210842-5 (Version None)
Quarter: 2011Q1

REPORT INFORMATION
  Report Type: 
  Country: None (occurrence: None)
  Receive Date: 20110105
  Receipt Date: 20101221
  Transmission Date: 20110831
  Serious: Yes (Hospitalization)
  Sender: FDA-Public Use
  Company Number: DE-BIOGENIDEC-2010BI038559

PATIENT
  Age: 52 Year
  Sex: Female
  Weight: 77 kg

DRUGS (9)
  1. SIMVASTATIN [Concomitant]
     Indication: HYPERCHOLESTEROLAEMIA
  2. TOLPERISON [Concomitant]
     Indication: MUSCLE SPASTICITY
  3. VIGANTOLETTEN [Concomitant]
  4. MAGNESIUM [Concomitant]
     Indication: MUSCLE SPASMS
  5. THYRONAJOD [Concomitant]
     Indication: HYPOTHYROIDISM
  6. TYSABRI [Suspect]
     Indication: MULTIPLE SCLEROSIS
     Route: 042
     Dates: start: 20071218, end: 20100901
  7. CALCIUM AND VITAMIN D [Concomitant]
     Indication: OSTEOPOROSIS PROPHYLAXIS
  8. OPIPRAMOL [Concomitant]
  9. OMACOR [Concomitant]

REACTIONS (1)
  - INTERVERTEBRAL DISC PROTRUSION [None]
